FAERS Safety Report 4937784-X (Version None)
Quarter: 2006Q1

REPORT INFORMATION
  Report Type: 
  Country: None (occurrence: None)
  Receive Date: 20060309
  Receipt Date: 20050414
  Transmission Date: 20060701
  Serious: Yes (Hospitalization, Other)
  Sender: FDA-Public Use
  Company Number: US-MERCK-0504USA03045

PATIENT
  Age: 71 Year
  Sex: Female
  Weight: 93 kg

DRUGS (1)
  1. VIOXX [Suspect]
     Indication: ARTHRITIS
     Route: 048
     Dates: start: 20010201, end: 20021001

REACTIONS (13)
  - BREAST CANCER [None]
  - BREAST CANCER FEMALE [None]
  - CARDIAC FAILURE [None]
  - CEREBROVASCULAR ACCIDENT [None]
  - CHEST PAIN [None]
  - DEPRESSION [None]
  - HEPATOCELLULAR DAMAGE [None]
  - HYPERTENSION [None]
  - MYOCARDIAL INFARCTION [None]
  - RENAL DISORDER [None]
  - RENAL INJURY [None]
  - THROMBOSIS [None]
  - ULCER [None]
